FAERS Safety Report 17484435 (Version 1)
Quarter: 2020Q1

REPORT INFORMATION
  Report Type: Spontaneous
  Country: US (occurrence: US)
  Receive Date: 20200219
  Receipt Date: 20200219
  Transmission Date: 20200409
  Serious: Yes (Hospitalization)
  Sender: FDA-Public Use
  Company Number: None

PATIENT
  Age: 4 Year
  Sex: Female

DRUGS (12)
  1. PRVASTATIN [Concomitant]
  2. JANUMET [Concomitant]
     Active Substance: METFORMIN HYDROCHLORIDE\SITAGLIPTIN PHOSPHATE
  3. COPAXONE [Suspect]
     Active Substance: GLATIRAMER ACETATE
     Indication: MULTIPLE SCLEROSIS
     Dosage: OTHER DOSE:4D MG/ML SYR(12=12);OTHER ROUTE:INJECTION 3X WEEK INJECTION?
     Dates: start: 20170613
  4. GABAPENTIN. [Concomitant]
     Active Substance: GABAPENTIN
  5. SEGLUOMET [Concomitant]
  6. LOSARTAN POT [Concomitant]
     Active Substance: LOSARTAN POTASSIUM
  7. METHOCARBAM [Concomitant]
     Active Substance: METHOCARBAMOL
  8. SEGLUROMET [Concomitant]
     Active Substance: ERTUGLIFLOZIN PIDOLATE\METFORMIN HYDROCHLORIDE
  9. GLIMPRIDE [Concomitant]
  10. DIAZEPAM. [Concomitant]
     Active Substance: DIAZEPAM
  11. DOK CAP [Concomitant]
  12. PAIN RELIEF CRE 4% [Concomitant]

REACTIONS (1)
  - Hernia repair [None]

NARRATIVE: CASE EVENT DATE: 20190131
